FAERS Safety Report 8534896-9 (Version None)
Quarter: 2012Q3

REPORT INFORMATION
  Report Type: 
  Country: None (occurrence: None)
  Receive Date: 20120724
  Receipt Date: 20120719
  Transmission Date: 20120928
  Serious: Yes (Hospitalization, Other)
  Sender: FDA-Public Use
  Company Number: US-ROCHE-1057150

PATIENT
  Sex: Female
  Weight: 92.389 kg

DRUGS (2)
  1. XELODA [Suspect]
     Indication: COLON CANCER
     Route: 048
     Dates: start: 20111215, end: 20120717
  2. OXALIPLATIN [Concomitant]
     Indication: COLON CANCER
     Route: 042
     Dates: start: 20120109, end: 20120220

REACTIONS (8)
  - SKIN DISCOLOURATION [None]
  - ELECTROLYTE IMBALANCE [None]
  - CONTUSION [None]
  - DYSPNOEA [None]
  - PNEUMONIA [None]
  - ABASIA [None]
  - NEUROPATHY PERIPHERAL [None]
  - DRY SKIN [None]
